FAERS Safety Report 4269451-2 (Version None)
Quarter: 2004Q1

REPORT INFORMATION
  Report Type: 
  Country: None (occurrence: None)
  Receive Date: 20040113
  Receipt Date: 20030604
  Transmission Date: 20041129
  Serious: Yes (Death, Life-Threatening)
  Sender: FDA-Public Use
  Company Number: PL-ROCHE-339373

PATIENT
  Age: 46 Year
  Sex: Female
  Weight: 50 kg

DRUGS (2)
  1. PEG-INTERFERON ALFA 2A (RO 25-8310) [Suspect]
     Dosage: DOSAGE FORM REPORTED AS PFS.
     Route: 058
     Dates: start: 20020826, end: 20030602
  2. LEVOTHYROXINE SODIUM [Concomitant]
     Dates: start: 20030407, end: 20030609

REACTIONS (9)
  - EPISTAXIS [None]
  - GASTROINTESTINAL HAEMORRHAGE [None]
  - GENITAL HAEMORRHAGE [None]
  - GINGIVAL BLEEDING [None]
  - HEPATIC CIRRHOSIS [None]
  - HYPOTHYROIDISM [None]
  - IDIOPATHIC THROMBOCYTOPENIC PURPURA [None]
  - MARROW HYPERPLASIA [None]
  - THROMBOCYTOPENIA [None]
